FAERS Safety Report 18820261 (Version 3)
Quarter: 2021Q1

REPORT INFORMATION
  Report Type: Report from Study
  Country: CO (occurrence: CO)
  Receive Date: 20210202
  Receipt Date: 20210225
  Transmission Date: 20210419
  Serious: Yes (Hospitalization)
  Sender: FDA-Public Use
  Company Number: NVSC2021CO022676

PATIENT
  Age: 48 Year
  Sex: Female
  Weight: 83 kg

DRUGS (6)
  1. CARVEDILOL. [Suspect]
     Active Substance: CARVEDILOL
     Indication: HYPERTENSION
     Dosage: UNK
     Route: 065
  2. REVOLADE [Suspect]
     Active Substance: ELTROMBOPAG OLAMINE
     Indication: APLASTIC ANAEMIA
     Dosage: 100 MG, QD (TABLET)
     Route: 048
     Dates: start: 202101
  3. PREDNISOLONE. [Suspect]
     Active Substance: PREDNISOLONE
     Indication: PRODUCT USED FOR UNKNOWN INDICATION
     Dosage: UNK
     Route: 065
  4. FUROSEMIDE. [Concomitant]
     Active Substance: FUROSEMIDE
     Indication: PRODUCT USED FOR UNKNOWN INDICATION
     Dosage: UNK
     Route: 065
  5. REVOLADE [Suspect]
     Active Substance: ELTROMBOPAG OLAMINE
     Dosage: UNK
     Route: 048
  6. CICLOSPORIN [Suspect]
     Active Substance: CYCLOSPORINE
     Indication: APLASTIC ANAEMIA
     Dosage: 25 MG, QD (EVERY 24 HOURS)
     Route: 048
     Dates: start: 202101

REACTIONS (12)
  - Eye colour change [Unknown]
  - Decreased immune responsiveness [Unknown]
  - Lymphocyte count decreased [Unknown]
  - Product use in unapproved indication [Unknown]
  - Dizziness [Unknown]
  - Platelet count decreased [Unknown]
  - Gastritis [Unknown]
  - Swelling face [Unknown]
  - Eye haemorrhage [Recovered/Resolved]
  - Haemoglobin decreased [Unknown]
  - Abdominal pain upper [Unknown]
  - Diabetes mellitus [Unknown]

NARRATIVE: CASE EVENT DATE: 20210118
